FAERS Safety Report 21138588 (Version 1)
Quarter: 2022Q3

REPORT INFORMATION
  Report Type: Spontaneous
  Country: US (occurrence: US)
  Receive Date: 20220727
  Receipt Date: 20220727
  Transmission Date: 20221026
  Serious: Yes (Disabling, Other)
  Sender: FDA-Public Use
  Company Number: US-ALLERGAN-2224108US

PATIENT

DRUGS (5)
  1. UBRELVY [Suspect]
     Active Substance: UBROGEPANT
     Indication: Headache
     Dosage: UNK
  2. AJOVY [Suspect]
     Active Substance: FREMANEZUMAB-VFRM
     Indication: Headache
     Dosage: UNK, SINGLE
  3. SUMATRIPTAN [Suspect]
     Active Substance: SUMATRIPTAN
     Indication: Headache
     Dosage: UNK
  4. NURTEC ODT [Suspect]
     Active Substance: RIMEGEPANT SULFATE
     Indication: Headache
     Dosage: UNK
  5. REYVOW [Concomitant]
     Active Substance: LASMIDITAN

REACTIONS (3)
  - Ischaemic stroke [Recovered/Resolved with Sequelae]
  - Brain injury [Not Recovered/Not Resolved]
  - Aura [Recovered/Resolved]
